FAERS Safety Report 23105057 (Version 1)
Quarter: 2023Q4

REPORT INFORMATION
  Report Type: Spontaneous
  Country: US (occurrence: US)
  Receive Date: 20231025
  Receipt Date: 20231025
  Transmission Date: 20240109
  Serious: No
  Sender: FDA-Public Use
  Company Number: US-SA-SAC20231019000966

PATIENT
  Sex: Male
  Weight: 58.9 kg

DRUGS (3)
  1. DUPIXENT [Suspect]
     Active Substance: DUPILUMAB
     Indication: Dermatitis atopic
     Dosage: 200 MG, QOW
     Route: 058
  2. EPIPEN [Concomitant]
     Active Substance: EPINEPHRINE
     Dosage: UNK
  3. CHILDRENS BENADRYL ALLERGY [DIPHENHYDRAMINE HYDROCHLORIDE] [Concomitant]

REACTIONS (3)
  - Discomfort [Unknown]
  - Eczema [Unknown]
  - Off label use [Unknown]
